FAERS Safety Report 20108143 (Version 1)
Quarter: 2021Q4

REPORT INFORMATION
  Report Type: Spontaneous
  Country: US (occurrence: US)
  Receive Date: 20211124
  Receipt Date: 20211124
  Transmission Date: 20220303
  Serious: No
  Sender: FDA-Public Use
  Company Number: US-KERYX BIOPHARMACEUTICALS INC.-2021US007695

PATIENT
  Sex: Male

DRUGS (1)
  1. AURYXIA [Suspect]
     Active Substance: TETRAFERRIC TRICITRATE DECAHYDRATE
     Indication: Dialysis
     Dosage: 2 GRAM (TABLETS) WITH EACH MEAL, QD
     Route: 048
     Dates: start: 202001, end: 202101

REACTIONS (1)
  - Pigmentation disorder [Recovering/Resolving]

NARRATIVE: CASE EVENT DATE: 20200101
